FAERS Safety Report 18582344 (Version 1)
Quarter: 2020Q4

REPORT INFORMATION
  Report Type: Spontaneous
  Country: US (occurrence: US)
  Receive Date: 20201202
  Receipt Date: 20201202
  Transmission Date: 20210114
  Serious: Yes (Hospitalization)
  Sender: FDA-Public Use
  Company Number: None

PATIENT
  Age: 77 Year
  Sex: Male
  Weight: 65 kg

DRUGS (1)
  1. SPIRONOLACTONE (SPIRONOLACTONE 50MG TAB) [Suspect]
     Active Substance: SPIRONOLACTONE
     Indication: HYPERTENSION
     Dates: start: 20201105

REACTIONS (6)
  - Blood urea increased [None]
  - Acute kidney injury [None]
  - Syncope [None]
  - Hyperkalaemia [None]
  - Myalgia [None]
  - Blood creatinine increased [None]

NARRATIVE: CASE EVENT DATE: 20201117
